FAERS Safety Report 18992253 (Version 3)
Quarter: 2022Q2

REPORT INFORMATION
  Report Type: Spontaneous
  Country: CA (occurrence: CA)
  Receive Date: 20210310
  Receipt Date: 20220525
  Transmission Date: 20220721
  Serious: Yes (Other)
  Sender: FDA-Public Use
  Company Number: CA-AMERICAN REGENT INC-2021000586

PATIENT
  Age: 22 Year
  Sex: Female

DRUGS (6)
  1. VENOFER [Suspect]
     Active Substance: IRON SUCROSE
     Indication: Serum ferritin decreased
     Dosage: 200 MG IN 250 ML NS
     Route: 042
     Dates: start: 20200727, end: 20200727
  2. VENOFER [Suspect]
     Active Substance: IRON SUCROSE
     Dosage: UNK
  3. HYDROCORTISONE [Suspect]
     Active Substance: HYDROCORTISONE
     Indication: Infusion related reaction
     Dosage: 100 MILLIGRAM
     Route: 042
     Dates: start: 20200727
  4. VENTOLIN [Suspect]
     Active Substance: ALBUTEROL SULFATE
     Indication: Infusion related reaction
     Dosage: 5 MILLIGRAM
     Dates: start: 20200727
  5. BENADRYL                           /00000402/ [Concomitant]
     Indication: Product used for unknown indication
     Dosage: UNK
     Route: 065
  6. LORATADINE [Concomitant]
     Active Substance: LORATADINE
     Indication: Premedication
     Dosage: UNK, SINGLE
     Route: 065
     Dates: start: 20200727, end: 20200727

REACTIONS (7)
  - Tremor [Unknown]
  - Pharyngeal swelling [Unknown]
  - Urticaria [Unknown]
  - Infusion related reaction [Unknown]
  - Pruritus [Unknown]
  - Product preparation issue [Unknown]
  - Incorrect product administration duration [Unknown]

NARRATIVE: CASE EVENT DATE: 20200727
